FAERS Safety Report 9562521 (Version 1)
Quarter: 2013Q3

REPORT INFORMATION
  Report Type: Spontaneous
  Country: DE (occurrence: DE)
  Receive Date: 20130927
  Receipt Date: 20130927
  Transmission Date: 20140515
  Serious: Yes (Death, Hospitalization, Other)
  Sender: FDA-Public Use
  Company Number: DE-TEVA-433169GER

PATIENT
  Age: 85 Year
  Sex: Female

DRUGS (8)
  1. RAMIPRIL [Suspect]
  2. AFINITOR [Suspect]
     Indication: METASTASES TO LIVER
     Dates: start: 201305
  3. METFORMIN [Concomitant]
  4. DIGITOXIN [Concomitant]
  5. ATELEC [Concomitant]
  6. GLIMEPIRID [Concomitant]
  7. EXEMESTAN [Concomitant]
     Indication: METASTASES TO LIVER
     Dates: start: 201305
  8. BELOC-ZOK MITE [Concomitant]

REACTIONS (4)
  - Multi-organ failure [Fatal]
  - Angioedema [Not Recovered/Not Resolved]
  - Septic shock [Not Recovered/Not Resolved]
  - Pneumonia [Not Recovered/Not Resolved]
